FAERS Safety Report 8349234-4 (Version None)
Quarter: 2012Q2

REPORT INFORMATION
  Report Type: 
  Country: None (occurrence: None)
  Receive Date: 20120510
  Receipt Date: 20120504
  Transmission Date: 20120825
  Serious: Yes (Hospitalization, Other)
  Sender: FDA-Public Use
  Company Number: PHHY2012DE028809

PATIENT
  Sex: Male
  Weight: 82 kg

DRUGS (17)
  1. MOXONIDINE [Concomitant]
     Dosage: 0.5 MG/D
     Route: 048
     Dates: start: 20090925
  2. DIURETICS [Concomitant]
     Dates: start: 20091119
  3. ALDOSTERONE ANTAGONISTS [Concomitant]
  4. DIGOXIN [Suspect]
     Dosage: 0.2 MG/D
     Route: 048
     Dates: start: 20030930
  5. PANTOPRAZOLE [Concomitant]
     Dosage: 80 MG/D
     Route: 048
     Dates: start: 20111222
  6. ORAL ANTIDIABETICS [Concomitant]
     Indication: DIABETES MELLITUS
  7. INSULIN [Concomitant]
     Indication: DIABETES MELLITUS
     Dosage: 36 IU/D
     Route: 048
     Dates: start: 20040223
  8. MARCUMAR [Concomitant]
     Dosage: 1.5 MG/D
     Route: 048
     Dates: start: 20030930
  9. CANDESARTAN CILEXETIL [Concomitant]
     Dosage: 16 MG/D
     Route: 048
     Dates: start: 20091019, end: 20111018
  10. MOLSIDOMIN [Concomitant]
     Dosage: 8 MG/D
     Route: 048
     Dates: start: 20050209
  11. RASILEZ [Suspect]
     Indication: HYPERTENSION
     Dosage: 150 MG, QD
     Route: 048
     Dates: start: 20090120, end: 20090428
  12. SIMVASTATIN [Concomitant]
     Dosage: 20 MG/D
     Route: 048
     Dates: start: 20050914
  13. PLATELET AGGREGATION INHIBITORS [Concomitant]
  14. LASIX [Concomitant]
     Dosage: 40 MG/D
     Route: 048
     Dates: start: 20110901
  15. AMLODIPINE [Concomitant]
     Dosage: 5 MG/D
     Route: 048
     Dates: start: 20090206
  16. ISOSORBIDE DINITRATE [Concomitant]
     Dosage: 120 MG/D
     Route: 048
     Dates: start: 20030930
  17. ANTICOAGULANTS [Concomitant]

REACTIONS (10)
  - CORONARY ARTERY DISEASE [None]
  - ANGINA PECTORIS [None]
  - DYSPNOEA [None]
  - ELECTROCARDIOGRAM QRS COMPLEX PROLONGED [None]
  - ATRIAL FIBRILLATION [None]
  - CARDIAC FAILURE [None]
  - BLOOD PRESSURE DIASTOLIC DECREASED [None]
  - LEFT VENTRICULAR HYPERTROPHY [None]
  - BLOOD POTASSIUM INCREASED [None]
  - GLYCOSYLATED HAEMOGLOBIN INCREASED [None]
